FAERS Safety Report 12327997 (Version 1)
Quarter: 2016Q2

REPORT INFORMATION
  Report Type: Spontaneous
  Country: US (occurrence: US)
  Receive Date: 20160503
  Receipt Date: 20160503
  Transmission Date: 20160815
  Serious: Yes (Hospitalization, Other)
  Sender: FDA-Public Use
  Company Number: US-ELI_LILLY_AND_COMPANY-US201604008360

PATIENT
  Age: 27 Year
  Sex: Female
  Weight: 67.12 kg

DRUGS (4)
  1. LASIX [Suspect]
     Active Substance: FUROSEMIDE
     Indication: PRODUCT USED FOR UNKNOWN INDICATION
     Dosage: 40 MG, PRN
     Route: 048
  2. TADALAFIL [Suspect]
     Active Substance: TADALAFIL
     Indication: PRODUCT USED FOR UNKNOWN INDICATION
     Dosage: 40 MG, QD
     Route: 065
  3. LETAIRIS [Suspect]
     Active Substance: AMBRISENTAN
     Indication: PRODUCT USED FOR UNKNOWN INDICATION
     Dosage: 10 MG, QD
     Route: 065
  4. TYVASO [Suspect]
     Active Substance: TREPROSTINIL
     Indication: PRODUCT USED FOR UNKNOWN INDICATION
     Dosage: UNK, OTHER (9 BREATHS 4 TIMES DAILY)
     Route: 065

REACTIONS (22)
  - Blood calcium decreased [Unknown]
  - Pericardial effusion [Unknown]
  - Red cell distribution width increased [Unknown]
  - Neck pain [Recovered/Resolved]
  - Abdominal pain upper [Unknown]
  - Pulmonary hypertension [Unknown]
  - Right ventricular failure [Unknown]
  - Syncope [Recovered/Resolved]
  - Prothrombin time prolonged [Unknown]
  - Vagus nerve disorder [Unknown]
  - Hypotension [Unknown]
  - Renal failure [Recovered/Resolved]
  - Dyspnoea [Unknown]
  - Vomiting [Unknown]
  - Blood albumin decreased [Unknown]
  - Platelet count decreased [Unknown]
  - Pulmonary thrombosis [Unknown]
  - Nausea [Unknown]
  - Hypoxia [Unknown]
  - International normalised ratio increased [Unknown]
  - Oedema peripheral [Unknown]
  - Sinus bradycardia [Unknown]

NARRATIVE: CASE EVENT DATE: 20151217
